FAERS Safety Report 12532312 (Version 1)
Quarter: 2016Q3

REPORT INFORMATION
  Report Type: Spontaneous
  Country: FR (occurrence: FR)
  Receive Date: 20160706
  Receipt Date: 20160706
  Transmission Date: 20161109
  Serious: Yes (Hospitalization)
  Sender: FDA-Public Use
  Company Number: FR-DSJP-DSE-2016-122049

PATIENT

DRUGS (1)
  1. COOLMETEC 40 MG/ 25 MG [Suspect]
     Active Substance: HYDROCHLOROTHIAZIDE\OLMESARTAN MEDOXOMIL
     Indication: HYPERTENSION
     Dosage: 40/25 MG, QD
     Route: 048
     Dates: start: 2013, end: 20160509

REACTIONS (4)
  - Gastritis [Unknown]
  - Diarrhoea [Recovered/Resolved]
  - Colitis [Unknown]
  - Proctitis [Unknown]

NARRATIVE: CASE EVENT DATE: 20160306
